FAERS Safety Report 4717635-9 (Version None)
Quarter: 2005Q3

REPORT INFORMATION
  Report Type: 
  Country: None (occurrence: None)
  Receive Date: 20050713
  Receipt Date: 20050506
  Transmission Date: 20060218
  Serious: Yes (Other)
  Sender: FDA-Public Use
  Company Number: 404332

PATIENT
  Sex: Female

DRUGS (3)
  1. FUZEON [Suspect]
     Indication: HIV INFECTION
     Dates: start: 20040715, end: 20041215
  2. NORVIR [Concomitant]
  3. VIDEX [Concomitant]

REACTIONS (2)
  - INJECTION SITE DISCOLOURATION [None]
  - INJECTION SITE ERYTHEMA [None]
